FAERS Safety Report 15155865 (Version 1)
Quarter: 2018Q3

REPORT INFORMATION
  Report Type: Spontaneous
  Country: DE (occurrence: DE)
  Receive Date: 20180717
  Receipt Date: 20180717
  Transmission Date: 20181010
  Serious: Yes (Other)
  Sender: FDA-Public Use
  Company Number: DE-US WORLDMEDS, LLC-STA_00020277

PATIENT
  Age: 64 Year
  Sex: Male
  Weight: 90 kg

DRUGS (8)
  1. DIOVAN [Concomitant]
     Active Substance: VALSARTAN
     Route: 048
  2. SIFROL 3,15 MG RET [Concomitant]
     Route: 048
  3. DIGIMERCK 0,1, MG [Concomitant]
     Route: 048
  4. EUCREAS 50/100 MG [Concomitant]
     Route: 048
  5. APOMORPHINE HYDROCHLORIDE [Suspect]
     Active Substance: APOMORPHINE HYDROCHLORIDE
     Indication: PARKINSON^S DISEASE
     Route: 058
     Dates: start: 20131206
  6. MADOPAR T 250 MG [Concomitant]
     Route: 048
  7. AZILECT [Concomitant]
     Active Substance: RASAGILINE MESYLATE
     Route: 048
  8. TASMAR 100 [Concomitant]
     Route: 048

REACTIONS (5)
  - Injection site abscess [Not Recovered/Not Resolved]
  - Injection site induration [Not Recovered/Not Resolved]
  - Injection site erythema [Not Recovered/Not Resolved]
  - Injection site necrosis [Not Recovered/Not Resolved]
  - Injection site nodule [Not Recovered/Not Resolved]

NARRATIVE: CASE EVENT DATE: 20131206
